FAERS Safety Report 12067605 (Version 1)
Quarter: 2016Q1

REPORT INFORMATION
  Report Type: Spontaneous
  Country: HR (occurrence: HR)
  Receive Date: 20160211
  Receipt Date: 20160211
  Transmission Date: 20160526
  Serious: Yes (Hospitalization)
  Sender: FDA-Public Use
  Company Number: HR-EMD SERONO-E2B_80031343

PATIENT
  Age: 40 Year
  Sex: Female
  Weight: 75 kg

DRUGS (1)
  1. REBIF [Suspect]
     Active Substance: INTERFERON BETA-1A
     Indication: MULTIPLE SCLEROSIS
     Dosage: PRE FILLED SYRINGES
     Route: 058
     Dates: start: 20121015, end: 20150828

REACTIONS (1)
  - Schizophreniform disorder [Recovered/Resolved]

NARRATIVE: CASE EVENT DATE: 20150801
